FAERS Safety Report 19211363 (Version 3)
Quarter: 2021Q2

REPORT INFORMATION
  Report Type: Spontaneous
  Country: US (occurrence: US)
  Receive Date: 20210501
  Receipt Date: 20210601
  Transmission Date: 20210717
  Serious: Yes (Other)
  Sender: FDA-Public Use
  Company Number: US-ORGANON-O2104USA002507

PATIENT
  Age: 34 Year
  Sex: Female

DRUGS (2)
  1. NEXPLANON [Suspect]
     Active Substance: ETONOGESTREL
     Indication: CONTRACEPTION
     Dosage: 1 IMPLANT
     Route: 059
     Dates: start: 2019
  2. FLUOXETINE [Concomitant]
     Active Substance: FLUOXETINE HYDROCHLORIDE
     Dosage: UNK

REACTIONS (3)
  - Abortion spontaneous [Unknown]
  - Unintended pregnancy [Recovered/Resolved]
  - Pregnancy with implant contraceptive [Recovered/Resolved]

NARRATIVE: CASE EVENT DATE: 2021
